FAERS Safety Report 23556789 (Version 1)
Quarter: 2024Q1

REPORT INFORMATION
  Report Type: Report from Study
  Country: CN (occurrence: CN)
  Receive Date: 20240223
  Receipt Date: 20240223
  Transmission Date: 20240410
  Serious: Yes (Other)
  Sender: FDA-Public Use
  Company Number: CN-SUN PHARMACEUTICAL INDUSTRIES LTD-2024R1-432559

PATIENT
  Age: 10 Year
  Sex: Female

DRUGS (1)
  1. OXCARBAZEPINE [Suspect]
     Active Substance: OXCARBAZEPINE
     Indication: Seizure prophylaxis
     Dosage: 0.3 GRAM, DAILY
     Route: 065

REACTIONS (2)
  - Eyelid myoclonus [Unknown]
  - Heart rate increased [Unknown]
